FAERS Safety Report 6793451-1 (Version None)
Quarter: 2010Q2

REPORT INFORMATION
  Report Type: 
  Country: None (occurrence: None)
  Receive Date: 20100624
  Receipt Date: 20100405
  Transmission Date: 20101027
  Serious: Yes (Other)
  Sender: FDA-Public Use
  Company Number: US-MYLANLABS-2010S1004489

PATIENT
  Age: 12 Year
  Sex: Female

DRUGS (7)
  1. CLOZAPINE [Suspect]
     Indication: PSYCHOTIC DISORDER
     Route: 048
     Dates: start: 20100120, end: 20100208
  2. CLOZAPINE [Suspect]
     Route: 048
     Dates: start: 20100120, end: 20100208
  3. CLOZAPINE [Suspect]
     Route: 048
     Dates: start: 20100312
  4. WELLBUTRIN SR [Concomitant]
     Route: 048
  5. LEXAPRO [Concomitant]
     Route: 048
  6. CHLORPROMAZINE [Concomitant]
     Route: 048
  7. POLY-IRON /01485601/ [Concomitant]
     Route: 048

REACTIONS (2)
  - GRANULOCYTOPENIA [None]
  - LEUKOPENIA [None]
